FAERS Safety Report 8450701-3 (Version None)
Quarter: 2012Q2

REPORT INFORMATION
  Report Type: 
  Country: None (occurrence: None)
  Receive Date: 20120613
  Receipt Date: 20120601
  Transmission Date: 20120825
  Serious: Yes (Hospitalization)
  Sender: FDA-Public Use
  Company Number: AUR-APL-2012-02575

PATIENT
  Age: 56 Year
  Sex: Female
  Weight: 85.7 kg

DRUGS (8)
  1. HYDROCHLOROTHIAZIDE [Suspect]
     Indication: HYPERTENSION
     Dosage: (125 MG, 1 D), ORAL
     Route: 048
     Dates: start: 20111021
  2. ZANTAC [Concomitant]
  3. LISINOPRIL [Suspect]
     Indication: HYPERTENSION
     Dosage: (20 MG, 1 D), ORAL
     Route: 048
     Dates: start: 20081021
  4. NERATINIB [Suspect]
     Indication: BREAST CANCER
     Dosage: (240 MG, 1 D), ORAL
     Route: 048
     Dates: start: 20111212, end: 20120326
  5. DOXORUBICIN HYDROCHLORIDE [Suspect]
     Indication: BREAST CANCER
     Dosage: 60 MG/M2, DAY 1 OF C# 5-8, INTRAVENOUS
     Route: 042
     Dates: start: 20120327, end: 20120529
  6. CYCLOPHOSPHAMIDE [Suspect]
     Indication: BREAST CANCER
     Dosage: 600 MG/M2, DAY 1 OF C 5-8, INTRAVENOUS
     Route: 042
     Dates: start: 20120327, end: 20120529
  7. PACLITAXEL [Suspect]
     Indication: BREAST CANCER
     Dosage: 80 MG/M2, CYCLIC, DAY 1, 8, 15 OF C#1-4; INTRAVENOUS
     Route: 042
     Dates: start: 20111212, end: 20120313
  8. AMLODIPINE [Suspect]
     Indication: HYPERTENSION
     Dosage: (10 MG, 1 D), ORAL
     Route: 048
     Dates: start: 20080303

REACTIONS (7)
  - BREAST CANCER FEMALE [None]
  - DIZZINESS [None]
  - BLOOD POTASSIUM DECREASED [None]
  - HYPOTENSION [None]
  - ELECTROCARDIOGRAM ST-T CHANGE [None]
  - CARDIAC ENZYMES INCREASED [None]
  - DEHYDRATION [None]
